FAERS Safety Report 11921400 (Version 2)
Quarter: 2016Q1

REPORT INFORMATION
  Report Type: Spontaneous
  Country: JP (occurrence: JP)
  Receive Date: 20160115
  Receipt Date: 20160129
  Transmission Date: 20160526
  Serious: Yes (Hospitalization)
  Sender: FDA-Public Use
  Company Number: JP-GLAXOSMITHKLINE-JP2016JPN001151

PATIENT
  Age: 64 Year
  Sex: Male
  Weight: 73 kg

DRUGS (12)
  1. POLARAMINE [Concomitant]
     Active Substance: DEXCHLORPHENIRAMINE MALEATE
     Indication: PREMEDICATION
     Dosage: 10 MG, QD
     Route: 042
     Dates: start: 20150924, end: 20150924
  2. DEXART [Concomitant]
     Active Substance: DEXAMETHASONE SODIUM PHOSPHATE
     Dosage: UNK
     Dates: start: 20151001, end: 20151001
  3. SEROTONE [Concomitant]
     Active Substance: AZASETRON HYDROCHLORIDE
     Dosage: UNK
     Dates: start: 20151001, end: 20151001
  4. DEXART [Concomitant]
     Active Substance: DEXAMETHASONE SODIUM PHOSPHATE
     Dosage: UNK
     Dates: start: 20151008, end: 20151008
  5. POLARAMINE [Concomitant]
     Active Substance: DEXCHLORPHENIRAMINE MALEATE
     Dosage: UNK
     Dates: start: 20151008, end: 20151008
  6. ZANTAC [Suspect]
     Active Substance: RANITIDINE HYDROCHLORIDE
     Dosage: UNK
     Route: 041
     Dates: start: 20151008, end: 20151008
  7. POLARAMINE [Concomitant]
     Active Substance: DEXCHLORPHENIRAMINE MALEATE
     Dosage: UNK
     Dates: start: 20151001, end: 20151001
  8. SEROTONE [Concomitant]
     Active Substance: AZASETRON HYDROCHLORIDE
     Indication: PREMEDICATION
     Dosage: 10 MG, QD
     Route: 042
     Dates: start: 20150924, end: 20150924
  9. ZANTAC [Suspect]
     Active Substance: RANITIDINE HYDROCHLORIDE
     Dosage: UNK
     Route: 041
     Dates: start: 20151001, end: 20151001
  10. DEXART [Concomitant]
     Active Substance: DEXAMETHASONE SODIUM PHOSPHATE
     Indication: PREMEDICATION
     Dosage: 6.6 MG, QD
     Route: 042
     Dates: start: 20150924, end: 20150924
  11. SEROTONE [Concomitant]
     Active Substance: AZASETRON HYDROCHLORIDE
     Dosage: UNK
     Dates: start: 20151008, end: 20151008
  12. ZANTAC [Suspect]
     Active Substance: RANITIDINE HYDROCHLORIDE
     Indication: PREMEDICATION
     Dosage: 100 MG, QD
     Route: 041
     Dates: start: 20150924, end: 20150924

REACTIONS (13)
  - Chills [Recovered/Resolved]
  - Flushing [Unknown]
  - Feeling abnormal [Recovered/Resolved]
  - Dyspnoea [Recovering/Resolving]
  - Chest discomfort [Unknown]
  - Off label use [Unknown]
  - Hyperhidrosis [Unknown]
  - Oxygen saturation decreased [Unknown]
  - Feeling abnormal [Unknown]
  - Blood pressure decreased [Recovered/Resolved]
  - Vomiting [Unknown]
  - Dyspnoea [Unknown]
  - Pallor [Unknown]

NARRATIVE: CASE EVENT DATE: 20150924
